FAERS Safety Report 18187798 (Version 1)
Quarter: 2020Q3

REPORT INFORMATION
  Report Type: Report from Study
  Country: CA (occurrence: CA)
  Receive Date: 20200824
  Receipt Date: 20200824
  Transmission Date: 20201103
  Serious: Yes (Other)
  Sender: FDA-Public Use
  Company Number: CA-PFIZER INC-2020322370

PATIENT
  Age: 67 Year
  Sex: Male

DRUGS (22)
  1. PULMICORT TURBUHALER [Suspect]
     Active Substance: BUDESONIDE
     Dosage: 200 DF
  2. SINGULAIR [Suspect]
     Active Substance: MONTELUKAST SODIUM
     Dosage: UNK, 1X/DAY
  3. ZAFIRLUKAST. [Suspect]
     Active Substance: ZAFIRLUKAST
     Dosage: 20 MG, 2X/DAY
  4. AMOXICILLIN AND CLAVULANATE POTASSIUM [Concomitant]
     Active Substance: AMOXICILLIN\CLAVULANATE POTASSIUM
     Dosage: 1 DF, 2X/DAY
  5. ADVAIR HFA [Suspect]
     Active Substance: FLUTICASONE PROPIONATE\SALMETEROL XINAFOATE
     Dosage: UNK
  6. GLYCOPYRRONIUM BROMIDE [Suspect]
     Active Substance: GLYCOPYRRONIUM
     Dosage: 1 DF, 1X/DAY
  7. IPRATROPIUM BROMIDE/SALBUTAMOL SULFATE [Suspect]
     Active Substance: ALBUTEROL SULFATE\IPRATROPIUM BROMIDE
     Dosage: 1 DF, 4X/DAY
  8. AMOXICILLIN AND CLAVULANATE POTASSIUM [Concomitant]
     Active Substance: AMOXICILLIN\CLAVULANATE POTASSIUM
     Dosage: 1 DF, 2X/DAY
  9. MEPOLIZUMAB [Suspect]
     Active Substance: MEPOLIZUMAB
     Dosage: 100 MG
  10. PREDNISONE. [Suspect]
     Active Substance: PREDNISONE
     Dosage: 5.5 MG, 1X/DAY
  11. SPIRIVA [Suspect]
     Active Substance: TIOTROPIUM BROMIDE MONOHYDRATE
     Dosage: UNK
  12. WINPRED [Suspect]
     Active Substance: PREDNISONE
     Dosage: 400 MG, 4X/DAY
  13. GLYCOPYRRONIUM BROMIDE [Suspect]
     Active Substance: GLYCOPYRRONIUM
     Dosage: UNK, 2X/DAY
  14. PREDNISONE. [Suspect]
     Active Substance: PREDNISONE
     Dosage: 7 MG, 1X/DAY
  15. PREDNISONE. [Suspect]
     Active Substance: PREDNISONE
     Dosage: 50 MG
     Route: 065
  16. LEVOFLOXACIN. [Suspect]
     Active Substance: LEVOFLOXACIN
     Dosage: 1 DF, 1X/DAY
  17. DYMISTA [Suspect]
     Active Substance: AZELASTINE HYDROCHLORIDE\FLUTICASONE PROPIONATE
     Dosage: 2 DF, 2X/DAY
  18. PREDNISONE. [Suspect]
     Active Substance: PREDNISONE
     Dosage: 5 MG
     Route: 048
  19. PULMICORT TURBUHALER [Suspect]
     Active Substance: BUDESONIDE
     Dosage: 120 DF
  20. TRAMADOL. [Suspect]
     Active Substance: TRAMADOL
     Dosage: 30 DF
  21. BREO ELLIPTA [Suspect]
     Active Substance: FLUTICASONE FUROATE\VILANTEROL TRIFENATATE
     Dosage: 1 DF, 1X/DAY
  22. BUDESONIDE. [Suspect]
     Active Substance: BUDESONIDE
     Dosage: UNK UNK, 2X/DAY

REACTIONS (27)
  - Asthma [Unknown]
  - Hiatus hernia [Unknown]
  - Infection [Unknown]
  - Loss of personal independence in daily activities [Unknown]
  - Prolonged expiration [Unknown]
  - Wheezing [Unknown]
  - Fatigue [Unknown]
  - Respiratory disorder [Unknown]
  - Tachycardia [Unknown]
  - Disease progression [Unknown]
  - Pulmonary mass [Unknown]
  - Upper respiratory tract infection [Unknown]
  - Asthenia [Unknown]
  - Chest discomfort [Unknown]
  - Dry skin [Unknown]
  - Dyspnoea [Unknown]
  - Precancerous condition [Unknown]
  - Sputum discoloured [Unknown]
  - Sputum purulent [Unknown]
  - Chills [Unknown]
  - Productive cough [Unknown]
  - Pyrexia [Unknown]
  - Chronic sinusitis [Unknown]
  - Dyspnoea exertional [Unknown]
  - Pneumonia [Unknown]
  - Aphonia [Unknown]
  - Emphysema [Unknown]
